FAERS Safety Report 4999763-6 (Version None)
Quarter: 2006Q2

REPORT INFORMATION
  Report Type: 
  Country: None (occurrence: None)
  Receive Date: 20060511
  Receipt Date: 20060504
  Transmission Date: 20061013
  Serious: Yes (Death, Other)
  Sender: FDA-Public Use
  Company Number: US-GLAXOSMITHKLINE-B0423100A

PATIENT

DRUGS (9)
  1. MELPHALAN [Suspect]
     Indication: MULTIPLE MYELOMA
     Dosage: 8MGM2 CYCLIC
     Route: 065
  2. VINCRISTINE [Suspect]
     Indication: MULTIPLE MYELOMA
     Dosage: 1.2MGM2 CYCLIC
     Route: 065
  3. CARMUSTINE [Suspect]
     Indication: MULTIPLE MYELOMA
     Dosage: 20MGM2 CYCLIC
     Route: 065
  4. CYCLOPHOSPHAMIDE [Suspect]
     Indication: MULTIPLE MYELOMA
     Dosage: 400MGM2 CYCLIC
     Route: 042
  5. PREDNISONE TAB [Suspect]
     Indication: MULTIPLE MYELOMA
     Dosage: 40MGM2 CYCLIC
     Route: 048
  6. VINCRISTINE [Concomitant]
     Indication: PERIPHERAL BLOOD STEM CELL APHERESIS
     Dosage: .5MG CYCLIC
     Route: 065
  7. DOXORUBICIN [Concomitant]
     Indication: PERIPHERAL BLOOD STEM CELL APHERESIS
     Dosage: 10MGM2 CYCLIC
     Route: 065
  8. DEXAMETHASONE [Concomitant]
     Indication: PERIPHERAL BLOOD STEM CELL APHERESIS
     Dosage: 40MG CYCLIC
     Route: 048
  9. CYCLOPHOSPHAMIDE [Concomitant]
     Indication: PERIPHERAL BLOOD STEM CELL APHERESIS
     Dosage: 4.5GM2 UNKNOWN
     Route: 065

REACTIONS (2)
  - ACUTE RESPIRATORY DISTRESS SYNDROME [None]
  - PULMONARY OEDEMA [None]
